FAERS Safety Report 26108285 (Version 1)
Quarter: 2025Q4

REPORT INFORMATION
  Report Type: Spontaneous
  Country: US (occurrence: US)
  Receive Date: 20251201
  Receipt Date: 20251201
  Transmission Date: 20260118
  Serious: Yes (Hospitalization, Disabling, Other)
  Sender: FRESENIUS KABI
  Company Number: US-FreseniusKabi-FK202516111

PATIENT
  Age: 63 Year
  Sex: Male

DRUGS (4)
  1. ARSENIC TRIOXIDE [Suspect]
     Active Substance: ARSENIC TRIOXIDE
     Indication: Chemotherapy
     Dosage: ATO?RECEIVED A TOTAL OF 56 DAYS OF ATRA AND 41 DAYS OF ATO AND ACHIEVED COMPLETE MOLECULAR REMISSION
  2. ARSENIC TRIOXIDE [Suspect]
     Active Substance: ARSENIC TRIOXIDE
     Indication: Acute promyelocytic leukaemia
     Dosage: FOLLOWING INDUCTION AND WAS MAINTAINED ON ATRA REGIMEN 2 WEEKS ON AND 2 WEEKS OFF FOR NEXT 5 MONTHS
  3. TRETINOIN [Suspect]
     Active Substance: TRETINOIN
     Indication: Chemotherapy
     Dosage: ATRA?RECEIVED A TOTAL OF 56 DAYS OF ATRA AND 41 DAYS OF ATO AND ACHIEVED COMPLETE MOLECULAR REMISSIO
  4. TRETINOIN [Suspect]
     Active Substance: TRETINOIN
     Indication: Acute promyelocytic leukaemia
     Dosage: FOLLOWING INDUCTION AND WAS MAINTAINED ON ATRA REGIMEN 2 WEEKS ON AND 2 WEEKS OFF FOR NEXT 5 MONTHS

REACTIONS (1)
  - Guillain-Barre syndrome [Recovering/Resolving]
